FAERS Safety Report 10983216 (Version 5)
Quarter: 2015Q4

REPORT INFORMATION
  Report Type: Spontaneous
  Country: JP (occurrence: JP)
  Receive Date: 20150403
  Receipt Date: 20151002
  Transmission Date: 20160304
  Serious: Yes (Death, Hospitalization)
  Sender: FDA-Public Use
  Company Number: JP-PFIZER INC-2015111212

PATIENT
  Age: 50 Year
  Sex: Male

DRUGS (16)
  1. LYRICA [Suspect]
     Active Substance: PREGABALIN
     Indication: MYELOPATHY
     Dosage: 75 MG, 2X/DAY
     Route: 048
     Dates: start: 20110314
  2. TRINOSIN [Concomitant]
     Active Substance: ADENOSINE TRIPHOSPHATE DISODIUM
     Dosage: 1 G, 3X/DAY
     Route: 048
     Dates: start: 20140121
  3. LYRICA [Suspect]
     Active Substance: PREGABALIN
     Indication: PAIN IN EXTREMITY
  4. ASPARA-CA [Concomitant]
     Active Substance: CALCIUM ASPARTATE
     Dosage: 200 MG, 6XDAY
     Route: 048
     Dates: start: 20140502
  5. WARKMIN [Concomitant]
     Active Substance: ALFACALCIDOL
     Dosage: 0.5 ?G, 1X/DAY
     Route: 048
     Dates: start: 20140430
  6. ASPARA POTASSIUM [Concomitant]
     Active Substance: POTASSIUM ASPARTATE
     Dosage: 1 G, 3X/DAY
     Route: 048
     Dates: start: 20111126
  7. URIEF [Concomitant]
     Active Substance: SILODOSIN
     Dosage: 4 MG, 2X/DAY
     Route: 048
     Dates: start: 20111217
  8. CERCINE [Concomitant]
     Active Substance: DIAZEPAM
     Dosage: 2 MG, 3X/DAY
     Route: 048
     Dates: start: 20150210
  9. LYRICA [Suspect]
     Active Substance: PREGABALIN
     Indication: HYPOAESTHESIA
     Dosage: 75 MG, 1X/DAY
     Route: 048
     Dates: start: 20150303, end: 20150311
  10. TEGRETOL [Concomitant]
     Active Substance: CARBAMAZEPINE
     Dosage: 200 MG, 1X/DAY
     Route: 048
     Dates: start: 20081018
  11. LIMARMONE [Concomitant]
     Dosage: 5 ?G, 3X/DAY
     Route: 048
     Dates: start: 20090825
  12. METHYCOBAL [Concomitant]
     Active Substance: METHYLCOBALAMIN
     Dosage: 500 ?G, 3X/DAY
     Route: 048
     Dates: start: 20081126
  13. MIYA-BM [Concomitant]
     Active Substance: CLOSTRIDIUM BUTYRICUM SPORES STRAIN M-55
     Dosage: 1 DF, 3X/DAY
     Route: 048
     Dates: start: 20140415
  14. GOODMIN [Concomitant]
     Active Substance: BROTIZOLAM
     Dosage: 0.25 MG, 1X/DAY
     Route: 048
     Dates: start: 20110311
  15. ACECOL SANKYO [Concomitant]
     Dosage: 2 MG, 1X/DAY
     Route: 048
     Dates: start: 20131126
  16. RABEPRAZOLE NA [Concomitant]
     Dosage: 10 MG, 1X/DAY
     Route: 048
     Dates: start: 20110203

REACTIONS (7)
  - Respiratory failure [Fatal]
  - Tracheal obstruction [Fatal]
  - Delusion [Recovered/Resolved]
  - Vomiting [Fatal]
  - Urinary tract infection [Recovered/Resolved]
  - Abnormal behaviour [Recovered/Resolved]
  - Hallucination [Recovered/Resolved]

NARRATIVE: CASE EVENT DATE: 20150210
